FAERS Safety Report 22616027 (Version 1)
Quarter: 2023Q2

REPORT INFORMATION
  Report Type: Spontaneous
  Country: US (occurrence: US)
  Receive Date: 20230619
  Receipt Date: 20230619
  Transmission Date: 20230722
  Serious: Yes (Hospitalization, Disabling)
  Sender: FDA-Public Use
  Company Number: US-TEVA-2023-US-2897879

PATIENT
  Age: 40 Year
  Sex: Male

DRUGS (11)
  1. AMIKACIN [Suspect]
     Active Substance: AMIKACIN
     Indication: Mycobacterium abscessus infection
     Dosage: 15 MG/KG DAILY;
     Route: 042
  2. AMIKACIN [Suspect]
     Active Substance: AMIKACIN
     Dosage: THREE TIMES A WEEK
     Route: 042
  3. AMIKACIN [Suspect]
     Active Substance: AMIKACIN
     Route: 050
  4. LINEZOLID [Suspect]
     Active Substance: LINEZOLID
     Indication: Mycobacterium abscessus infection
     Dosage: 1200 MILLIGRAM DAILY;
     Route: 065
  5. LINEZOLID [Suspect]
     Active Substance: LINEZOLID
     Dosage: 900 MILLIGRAM DAILY;
     Route: 065
  6. CLARITHROMYCIN [Concomitant]
     Active Substance: CLARITHROMYCIN
     Indication: Mycobacterium abscessus infection
     Dosage: 1000 MILLIGRAM DAILY;
     Route: 065
  7. IMIPENEM AND CILASTATIN [Concomitant]
     Active Substance: CILASTATIN SODIUM\IMIPENEM
     Indication: Mycobacterium abscessus infection
     Dosage: 4 GRAM DAILY;
     Route: 065
  8. IMIPENEM AND CILASTATIN [Concomitant]
     Active Substance: CILASTATIN SODIUM\IMIPENEM
     Dosage: 3 GRAM DAILY;
     Route: 065
  9. LEVOFLOXACIN [Concomitant]
     Active Substance: LEVOFLOXACIN
     Indication: Mycobacterium abscessus infection
     Dosage: 500 MILLIGRAM DAILY;
     Route: 065
  10. MOXIFLOXACIN [Concomitant]
     Active Substance: MOXIFLOXACIN
     Indication: Mycobacterium abscessus infection
     Dosage: 400 MILLIGRAM DAILY;
     Route: 065
  11. AZITHROMYCIN [Concomitant]
     Active Substance: AZITHROMYCIN
     Indication: Mycobacterium abscessus infection
     Dosage: 500 MILLIGRAM DAILY;
     Route: 065

REACTIONS (3)
  - Thrombocytopenia [Unknown]
  - Ototoxicity [Unknown]
  - Deafness [Unknown]
